FAERS Safety Report 24175538 (Version 1)
Quarter: 2024Q3

REPORT INFORMATION
  Report Type: Spontaneous
  Country: US (occurrence: US)
  Receive Date: 20240805
  Receipt Date: 20240805
  Transmission Date: 20241016
  Serious: No
  Sender: EVOKE PHARMA
  Company Number: US-EVOKE PHARMA, INC.-2024EVO000002

PATIENT

DRUGS (1)
  1. GIMOTI [Suspect]
     Active Substance: METOCLOPRAMIDE HYDROCHLORIDE
     Indication: Impaired gastric emptying
     Dosage: UNK,1 SPRAY 3 TIMES DAILY BEFORE MEALS
     Route: 045

REACTIONS (3)
  - Nasal discomfort [Unknown]
  - Throat irritation [Unknown]
  - Dysgeusia [Unknown]
